FAERS Safety Report 4412051-1 (Version None)
Quarter: 2004Q3

REPORT INFORMATION
  Report Type: 
  Country: None (occurrence: None)
  Receive Date: 20040728
  Receipt Date: 20040715
  Transmission Date: 20050211
  Serious: Yes (Other)
  Sender: FDA-Public Use
  Company Number: 2004224031US

PATIENT
  Age: 63 Year
  Sex: Male
  Weight: 68 kg

DRUGS (4)
  1. BEXTRA [Suspect]
     Indication: ARTHRITIS
     Dosage: 20 MG, QD, ORAL
     Route: 048
     Dates: start: 20040101, end: 20040707
  2. COZAAR [Concomitant]
  3. CARDIZEM [Concomitant]
  4. PRILOSEC [Concomitant]

REACTIONS (8)
  - ABDOMINAL PAIN UPPER [None]
  - ABSCESS INTESTINAL [None]
  - DIARRHOEA [None]
  - ERYTHEMA [None]
  - FAECES DISCOLOURED [None]
  - HAEMORRHAGE [None]
  - PAINFUL DEFAECATION [None]
  - STOMACH DISCOMFORT [None]
